FAERS Safety Report 25706089 (Version 1)
Quarter: 2025Q3

REPORT INFORMATION
  Report Type: Spontaneous
  Country: JP (occurrence: JP)
  Receive Date: 20250820
  Receipt Date: 20250820
  Transmission Date: 20251021
  Serious: Yes (Death, Other)
  Sender: UNITED THERAPEUTICS
  Company Number: JP-UNITED THERAPEUTICS-UNT-2025-017293

PATIENT
  Age: 77 Year
  Sex: Male

DRUGS (2)
  1. TREPROSTINIL [Suspect]
     Active Substance: TREPROSTINIL
     Indication: Product used for unknown indication
     Dates: start: 20250423, end: 20250513
  2. TREPROSTINIL [Suspect]
     Active Substance: TREPROSTINIL

REACTIONS (6)
  - Death [Fatal]
  - Choking [Unknown]
  - Sensation of foreign body [Unknown]
  - Respiratory rate increased [Unknown]
  - Sneezing [Unknown]
  - Hypersensitivity [Unknown]

NARRATIVE: CASE EVENT DATE: 20250101
